FAERS Safety Report 14406043 (Version 3)
Quarter: 2018Q3

REPORT INFORMATION
  Report Type: Spontaneous
  Country: US (occurrence: US)
  Receive Date: 20180118
  Receipt Date: 20180913
  Transmission Date: 20181010
  Serious: No
  Sender: FDA-Public Use
  Company Number: US-PFIZER INC-2018020923

PATIENT
  Age: 7 Year
  Sex: Male
  Weight: 19.68 kg

DRUGS (4)
  1. GENOTROPIN [Suspect]
     Active Substance: SOMATROPIN
     Indication: BODY HEIGHT BELOW NORMAL
     Dosage: 1.1 MG, ONCE A DAY(EACH NIGHT)
     Route: 058
     Dates: start: 201609
  2. GENOTROPIN [Suspect]
     Active Substance: SOMATROPIN
     Indication: GROWTH HORMONE DEFICIENCY
     Dosage: 1 MG, 6 DAYS PER WEEK (0.3 MG/KG/WK)
     Route: 058
  3. GENOTROPIN [Suspect]
     Active Substance: SOMATROPIN
     Dosage: 1.1 MG, DAILY
     Dates: start: 20161030
  4. GENOTROPIN [Suspect]
     Active Substance: SOMATROPIN
     Dosage: 1.1 MG, 6 DAYS A WEEK

REACTIONS (3)
  - Drug prescribing error [Unknown]
  - Drug dose omission [Unknown]
  - Pain in extremity [Unknown]
